FAERS Safety Report 4417080-X (Version None)
Quarter: 2004Q3

REPORT INFORMATION
  Report Type: 
  Country: None (occurrence: None)
  Receive Date: 20040802
  Receipt Date: 20040721
  Transmission Date: 20050211
  Serious: Yes (Life-Threatening, Hospitalization, Disabling, Other)
  Sender: FDA-Public Use
  Company Number: HQWYE581312JUN03

PATIENT
  Age: 52 Year
  Sex: Male
  Weight: 113.5 kg

DRUGS (1)
  1. EFFEXOR XR [Suspect]
     Indication: DEPRESSION
     Dosage: 300 MG 1X PER 1 DAY, ORAL
     Route: 048
     Dates: start: 20020101

REACTIONS (39)
  - AGGRESSION [None]
  - AMNESIA [None]
  - ANGER [None]
  - ARTHRALGIA [None]
  - ARTHRITIS [None]
  - ASTHENIA [None]
  - BACK DISORDER [None]
  - BANKRUPTCY [None]
  - BLUNTED AFFECT [None]
  - BRUXISM [None]
  - CRYING [None]
  - DECREASED INTEREST [None]
  - DENTAL CARIES [None]
  - DRUG TOLERANCE [None]
  - DRUG WITHDRAWAL SYNDROME [None]
  - EMOTIONAL DISTRESS [None]
  - FEMUR FRACTURE [None]
  - FLASHBACK [None]
  - HIP ARTHROPLASTY [None]
  - HYPOAESTHESIA [None]
  - HYPOTONIA [None]
  - IMPLANT SITE INFECTION [None]
  - IRRITABILITY [None]
  - LARYNGEAL OEDEMA [None]
  - MOOD ALTERED [None]
  - MORBID THOUGHTS [None]
  - MUSCULOSKELETAL DISCOMFORT [None]
  - MUSCULOSKELETAL DISORDER [None]
  - MYALGIA [None]
  - NERVOUS SYSTEM DISORDER [None]
  - NIGHTMARE [None]
  - POST PROCEDURAL COMPLICATION [None]
  - SCAR [None]
  - SELF ESTEEM DECREASED [None]
  - SUICIDAL IDEATION [None]
  - TOOTH INJURY [None]
  - TOOTH LOSS [None]
  - TRACHEAL OEDEMA [None]
  - VISUAL ACUITY REDUCED [None]
